FAERS Safety Report 6100224-1 (Version None)
Quarter: 2009Q1

REPORT INFORMATION
  Report Type: 
  Country: None (occurrence: None)
  Receive Date: 20090303
  Receipt Date: 20090218
  Transmission Date: 20090719
  Serious: Yes (Other)
  Sender: FDA-Public Use
  Company Number: JP-ROCHE-616706

PATIENT
  Age: 56 Year
  Sex: Male

DRUGS (3)
  1. CELLCEPT [Suspect]
     Route: 048
  2. CYCLOSPORINE [Concomitant]
     Dosage: FORM: ORAL FORMULATION NOS
     Route: 048
  3. MEDROL [Concomitant]
     Route: 048

REACTIONS (1)
  - URETERIC STENOSIS [None]
